FAERS Safety Report 13105420 (Version 2)
Quarter: 2017Q1

REPORT INFORMATION
  Report Type: Spontaneous
  Country: KR (occurrence: KR)
  Receive Date: 20170111
  Receipt Date: 20170303
  Transmission Date: 20170428
  Serious: Yes (Death, Other)
  Sender: FDA-Public Use
  Company Number: KR-009507513-1701KOR003670

PATIENT
  Age: 85 Year
  Sex: Female
  Weight: 41.3 kg

DRUGS (20)
  1. TRISON (CEFTRIAXONE SODIUM) [Concomitant]
     Indication: PROPHYLAXIS
     Dosage: 2 G, QD
     Route: 042
     Dates: start: 20160629, end: 20160630
  2. OXYNORM [Concomitant]
     Active Substance: OXYCODONE HYDROCHLORIDE
     Indication: PAIN PROPHYLAXIS
     Dosage: STRENGTH: 20MG/ML; 80 MG, QD
     Route: 042
     Dates: start: 20160629, end: 20160704
  3. VINCRISTINE SULFATE. [Concomitant]
     Active Substance: VINCRISTINE SULFATE
     Indication: DIFFUSE LARGE B-CELL LYMPHOMA
     Dosage: 1.8 MG, ONCE, CYCLE 1
     Route: 042
     Dates: start: 20160629, end: 20160629
  4. WINUF [Concomitant]
     Indication: PROPHYLAXIS
     Dosage: 1435 ML, QD
     Route: 042
     Dates: start: 20160630, end: 20160710
  5. FOLIC ACID. [Concomitant]
     Active Substance: FOLIC ACID
     Indication: PROPHYLAXIS
     Dosage: 1 MG (1 TABLET), QD
     Route: 048
     Dates: start: 20160705, end: 20160709
  6. EMEND (FOSAPREPITANT DIMEGLUMINE) [Suspect]
     Active Substance: FOSAPREPITANT DIMEGLUMINE
     Indication: PROPHYLAXIS OF NAUSEA AND VOMITING
     Dosage: 150 MG, ONCE
     Route: 042
     Dates: start: 20160629, end: 20160629
  7. SOLONDO [Concomitant]
     Active Substance: PREDNISOLONE
     Indication: PROPHYLAXIS OF NAUSEA AND VOMITING
     Dosage: 50 MG (10 TABLETS), BID
     Route: 048
     Dates: start: 20160629, end: 20160703
  8. CARDIOXANE [Concomitant]
     Active Substance: DEXRAZOXANE HYDROCHLORIDE
     Indication: PROPHYLAXIS
     Dosage: 700 MG, ONCE
     Route: 042
     Dates: start: 20160629, end: 20160629
  9. ABSTRAL [Concomitant]
     Active Substance: FENTANYL CITRATE
     Dosage: 200 MICROGRAM, QID
     Route: 060
     Dates: start: 20160704, end: 20160705
  10. MABTHERA [Concomitant]
     Active Substance: RITUXIMAB
     Indication: DIFFUSE LARGE B-CELL LYMPHOMA
     Dosage: 500 MG, ONCE, CYCLE 1
     Route: 042
     Dates: start: 20160629, end: 20160629
  11. ADRIAMYCIN [Concomitant]
     Active Substance: DOXORUBICIN HYDROCHLORIDE
     Indication: DIFFUSE LARGE B-CELL LYMPHOMA
     Dosage: 35 MG, ONCE, CYCLE 1
     Route: 042
     Dates: start: 20160629, end: 20160629
  12. MORPHINE SULFATE. [Concomitant]
     Active Substance: MORPHINE SULFATE
     Indication: PAIN PROPHYLAXIS
     Dosage: 5 MG, ONCE
     Route: 042
     Dates: start: 20160705, end: 20160705
  13. ENDOXAN [Concomitant]
     Active Substance: CYCLOPHOSPHAMIDE
     Indication: DIFFUSE LARGE B-CELL LYMPHOMA
     Dosage: 500 MG, ONCE, CYCLE 1
     Route: 042
     Dates: start: 20160629, end: 20160629
  14. ALOXI [Concomitant]
     Active Substance: PALONOSETRON HYDROCHLORIDE
     Indication: PROPHYLAXIS OF NAUSEA AND VOMITING
     Dosage: 0.25 MG, ONCE
     Route: 042
     Dates: start: 20160629, end: 20160629
  15. CHLORPHENIRAMINE MALEATE. [Concomitant]
     Active Substance: CHLORPHENIRAMINE MALEATE
     Indication: ANTIALLERGIC THERAPY
     Dosage: 4 MG, ONCE
     Route: 042
     Dates: start: 20160629, end: 20160629
  16. TYLENOL EXTENDED RELIEF CAPLETS [Concomitant]
     Active Substance: ACETAMINOPHEN
     Indication: PAIN PROPHYLAXIS
     Dosage: 650 MG, ONCE
     Route: 048
     Dates: start: 20160629, end: 20160629
  17. DUROGESIC [Concomitant]
     Active Substance: FENTANYL
     Indication: PAIN PROPHYLAXIS
     Dosage: 25 MICROGRAM/HOUR, QD, STRENGTH: 25 MICROGRAM/HOUR
     Route: 062
     Dates: start: 20160630, end: 20160709
  18. FOSAMAX PLUS D [Concomitant]
     Active Substance: ALENDRONATE SODIUM\CHOLECALCIFEROL
     Indication: OSTEOPOROSIS PROPHYLAXIS
     Dosage: 1 TABLET, ONCE
     Route: 048
     Dates: start: 20160705, end: 20160705
  19. LANSTON [Concomitant]
     Active Substance: LANSOPRAZOLE
     Indication: PROPHYLAXIS AGAINST GASTROINTESTINAL ULCER
     Dosage: 15 MG (1 TABLET), QD
     Route: 048
     Dates: start: 20160705, end: 20160709
  20. ABSTRAL [Concomitant]
     Active Substance: FENTANYL CITRATE
     Indication: PAIN PROPHYLAXIS
     Dosage: 200 MICROGRAM, QID
     Route: 060
     Dates: start: 20160629, end: 20160630

REACTIONS (2)
  - Interstitial lung disease [Fatal]
  - Pyrexia [Recovered/Resolved]

NARRATIVE: CASE EVENT DATE: 20160705
